FAERS Safety Report 9684150 (Version 1)
Quarter: 2013Q4

REPORT INFORMATION
  Report Type: Spontaneous
  Country: US (occurrence: None)
  Receive Date: 20131111
  Receipt Date: 20131111
  Transmission Date: 20140711
  Serious: Yes (Other)
  Sender: FDA-Public Use
  Company Number: None

PATIENT
  Age: 22 Year
  Sex: Female
  Weight: 63.5 kg

DRUGS (1)
  1. CLINDAMYCIN [Suspect]
     Indication: ORAL INFECTION
     Dosage: 1, THREE TIMES DAILY, TAKEN BY MOUTH
     Route: 048
     Dates: start: 20130814, end: 20130823

REACTIONS (12)
  - Abdominal distension [None]
  - Muscle spasms [None]
  - Mucous stools [None]
  - Defaecation urgency [None]
  - Anxiety [None]
  - Anxiety [None]
  - Weight decreased [None]
  - Decreased appetite [None]
  - Back pain [None]
  - Lymphadenopathy [None]
  - Contusion [None]
  - Abdominal pain upper [None]
